FAERS Safety Report 9397153 (Version 1)
Quarter: 2013Q3

REPORT INFORMATION
  Report Type: Spontaneous
  Country: FR (occurrence: FR)
  Receive Date: 20130712
  Receipt Date: 20130712
  Transmission Date: 20140515
  Serious: Yes (Hospitalization)
  Sender: FDA-Public Use
  Company Number: PHHY2013FR073885

PATIENT
  Age: 35 Year
  Sex: Female

DRUGS (3)
  1. TEGRETOL LP [Suspect]
     Dosage: 1 G, QD
     Route: 048
  2. VIMPAT [Suspect]
     Dosage: 150 MG, BID
     Route: 048
  3. ALEPSAL [Suspect]
     Dosage: 50 MG, QD
     Route: 048

REACTIONS (6)
  - Abortion spontaneous [Unknown]
  - Pregnancy [None]
  - Malaise [None]
  - Dizziness [None]
  - Exposure during pregnancy [None]
  - Motor dysfunction [None]
